FAERS Safety Report 14266978 (Version 1)
Quarter: 2017Q4

REPORT INFORMATION
  Report Type: Spontaneous
  Country: IN (occurrence: IN)
  Receive Date: 20171211
  Receipt Date: 20171211
  Transmission Date: 20180321
  Serious: No
  Sender: FDA-Public Use
  Company Number: IN-LUPIN PHARMACEUTICALS INC.-2017-06463

PATIENT
  Age: 73 Year
  Sex: Male

DRUGS (1)
  1. AZISWIFT FILM C. TABS 500 MG [Suspect]
     Active Substance: AZITHROMYCIN
     Indication: SKIN DISORDER
     Dosage: UNK
     Route: 048
     Dates: start: 20171103, end: 20171103

REACTIONS (1)
  - Chromaturia [Recovered/Resolved]

NARRATIVE: CASE EVENT DATE: 20171103
